FAERS Safety Report 5322036-9 (Version None)
Quarter: 2007Q2

REPORT INFORMATION
  Report Type: 
  Country: None (occurrence: None)
  Receive Date: 20070507
  Receipt Date: 20070501
  Transmission Date: 20071010
  Serious: Yes (Hospitalization)
  Sender: FDA-Public Use
  Company Number: 2007AP000078

PATIENT
  Age: 30 Year
  Sex: Female

DRUGS (2)
  1. APO-DIVALPROEX (VALPROATE SEMISODIUM) DOSE, FORM, ROUTE AND FREQUENCY [Suspect]
     Indication: SCHIZOAFFECTIVE DISORDER
     Dosage: 1000 MG;TAB;PO; HS
     Route: 048
     Dates: start: 20040101
  2. QUETIAPINE FUMARATE [Suspect]
     Indication: SCHIZOAFFECTIVE DISORDER
     Dosage: 900 MG;PO;QHS
     Route: 048

REACTIONS (7)
  - CONSTIPATION [None]
  - DEHYDRATION [None]
  - HALLUCINATION [None]
  - MANIA [None]
  - PAIN [None]
  - SOMNOLENCE [None]
  - WEIGHT INCREASED [None]
